FAERS Safety Report 9404372 (Version 1)
Quarter: 2013Q3

REPORT INFORMATION
  Report Type: Spontaneous
  Country: ES (occurrence: ES)
  Receive Date: 20130717
  Receipt Date: 20130717
  Transmission Date: 20140515
  Serious: Yes (Other)
  Sender: FDA-Public Use
  Company Number: ES-ASTRAZENECA-2013SE51541

PATIENT
  Age: 58 Year
  Sex: Female

DRUGS (1)
  1. VIMOVO [Suspect]
     Indication: ARTHRALGIA
     Dosage: TWO TIMES A DAY
     Route: 048
     Dates: start: 20130612, end: 20130613

REACTIONS (2)
  - Chest discomfort [Unknown]
  - Joint swelling [Unknown]
